FAERS Safety Report 21261850 (Version 1)
Quarter: 2022Q3

REPORT INFORMATION
  Report Type: Spontaneous
  Country: US (occurrence: US)
  Receive Date: 20220827
  Receipt Date: 20220827
  Transmission Date: 20221027
  Serious: No
  Sender: FDA-Public Use
  Company Number: US-ORGANON-O2208USA001841

PATIENT
  Age: 17 Year
  Sex: Female
  Weight: 56.699 kg

DRUGS (2)
  1. NUVARING [Suspect]
     Active Substance: ETHINYL ESTRADIOL\ETONOGESTREL
     Indication: Contraception
     Dosage: 1 RING INSERTED FOR 3 WEEKS, WITH ONE WEEK REMOVED
     Route: 067
     Dates: start: 20220805
  2. PLAN B [Concomitant]
     Active Substance: LEVONORGESTREL
     Dosage: UNK

REACTIONS (1)
  - Breast discomfort [Not Recovered/Not Resolved]

NARRATIVE: CASE EVENT DATE: 20220805
